FAERS Safety Report 4665681-6 (Version None)
Quarter: 2005Q2

REPORT INFORMATION
  Report Type: 
  Country: None (occurrence: None)
  Receive Date: 20050517
  Receipt Date: 20050517
  Transmission Date: 20051028
  Serious: No
  Sender: FDA-Public Use
  Company Number: None

PATIENT
  Sex: Male
  Weight: 118 kg

DRUGS (3)
  1. OXALIPLATIN [Suspect]
     Indication: COLON CANCER
     Dosage: 85 MG/M2 IV DAY 1
     Route: 042
     Dates: start: 20041214
  2. LEUCOVORIN [Suspect]
     Dosage: 400 MG/M2 IV DAY 1
     Route: 042
  3. FLUOROURACIL [Suspect]
     Dosage: SEE IMAGE

REACTIONS (10)
  - ANGIOPATHY [None]
  - ASTHENIA [None]
  - BLOOD PRESSURE DIASTOLIC INCREASED [None]
  - CEREBROVASCULAR ACCIDENT [None]
  - CONVULSION [None]
  - DIZZINESS [None]
  - HEADACHE [None]
  - HEMIPLEGIA [None]
  - PAIN IN EXTREMITY [None]
  - TONIC CLONIC MOVEMENTS [None]
